FAERS Safety Report 6477206-3 (Version None)
Quarter: 2009Q4

REPORT INFORMATION
  Report Type: 
  Country: None (occurrence: None)
  Receive Date: 20091207
  Receipt Date: 20091124
  Transmission Date: 20100525
  Serious: Yes (Other)
  Sender: FDA-Public Use
  Company Number: PHEH2009US17141

PATIENT
  Sex: Female

DRUGS (1)
  1. GLEEVEC [Suspect]
     Indication: ACUTE MYELOID LEUKAEMIA
     Dosage: 200 MG, ONCE DAILY
     Route: 048
     Dates: start: 20091027, end: 20091123

REACTIONS (3)
  - NAUSEA [None]
  - TRANSPLANT [None]
  - VOMITING [None]
